FAERS Safety Report 20021271 (Version 1)
Quarter: 2021Q4

REPORT INFORMATION
  Report Type: Spontaneous
  Country: FR (occurrence: FR)
  Receive Date: 20211101
  Receipt Date: 20211101
  Transmission Date: 20220303
  Serious: Yes (Hospitalization, Other)
  Sender: FDA-Public Use
  Company Number: FR-AMNEAL PHARMACEUTICALS-2021-AMRX-04359

PATIENT
  Age: 70 Year
  Sex: Female
  Weight: 71 kg

DRUGS (1)
  1. ALBENZA [Suspect]
     Active Substance: ALBENDAZOLE
     Indication: Hepatic echinococciasis
     Dosage: 400 MILLIGRAM, 2X/DAY
     Route: 048
     Dates: start: 20210406, end: 20210923

REACTIONS (4)
  - Accidental overdose [Recovered/Resolved]
  - Drug level increased [Recovered/Resolved]
  - Pancytopenia [Recovered/Resolved]
  - Alopecia [Unknown]

NARRATIVE: CASE EVENT DATE: 20210909
